FAERS Safety Report 6300909-8 (Version None)
Quarter: 2009Q3

REPORT INFORMATION
  Report Type: 
  Country: None (occurrence: None)
  Receive Date: 20090807
  Receipt Date: 20090729
  Transmission Date: 20100115
  Serious: Yes (Hospitalization)
  Sender: FDA-Public Use
  Company Number: FR-JNJFOC-20090708891

PATIENT
  Age: 45 Year
  Sex: Male

DRUGS (8)
  1. PREZISTA [Suspect]
     Indication: HIV INFECTION
     Route: 048
  2. VELBE [Interacting]
     Indication: DRUG USE FOR UNKNOWN INDICATION
     Route: 042
  3. NORVIR [Interacting]
     Indication: HIV INFECTION
     Route: 048
  4. INTELENCE [Concomitant]
     Indication: HIV INFECTION
     Route: 048
  5. ISENTRESS [Concomitant]
     Indication: HIV INFECTION
     Route: 048
  6. ADRIBLASTINE [Concomitant]
     Route: 042
  7. BLEOMYCIN SULFATE [Concomitant]
     Route: 042
  8. DETICENE [Concomitant]
     Indication: HODGKIN'S DISEASE
     Route: 042

REACTIONS (2)
  - DRUG INTERACTION [None]
  - PANCYTOPENIA [None]
